FAERS Safety Report 15143741 (Version 1)
Quarter: 2018Q3

REPORT INFORMATION
  Report Type: Spontaneous
  Country: US (occurrence: US)
  Receive Date: 20180713
  Receipt Date: 20180713
  Transmission Date: 20181010
  Serious: No
  Sender: FDA-Public Use
  Company Number: US-AMGEN-USASP2010005009

PATIENT
  Sex: Female

DRUGS (1)
  1. PROCRIT [Suspect]
     Active Substance: ERYTHROPOIETIN
     Indication: ANAEMIA
     Dosage: 30000 IU, PRN
     Route: 058
     Dates: start: 200811

REACTIONS (3)
  - Nausea [Not Recovered/Not Resolved]
  - Dyskinesia [Not Recovered/Not Resolved]
  - Heart rate increased [Not Recovered/Not Resolved]

NARRATIVE: CASE EVENT DATE: 20101103
